FAERS Safety Report 12163617 (Version 1)
Quarter: 2016Q1

REPORT INFORMATION
  Report Type: Spontaneous
  Country: US (occurrence: US)
  Receive Date: 20160309
  Receipt Date: 20160309
  Transmission Date: 20160526
  Serious: No
  Sender: FDA-Public Use
  Company Number: US-ACTAVIS-2015-22901

PATIENT
  Sex: Female

DRUGS (1)
  1. OXYCODONE HYDROCHLORIDE (AELLC) [Suspect]
     Active Substance: OXYCODONE HYDROCHLORIDE
     Indication: SLEEP DISORDER
     Dosage: UNK, UNKNOWN
     Route: 065

REACTIONS (3)
  - Vomiting [Unknown]
  - Pruritus [Unknown]
  - Insomnia [Unknown]
